FAERS Safety Report 8163121-6 (Version None)
Quarter: 2012Q1

REPORT INFORMATION
  Report Type: 
  Country: None (occurrence: None)
  Receive Date: 20120224
  Receipt Date: 20120216
  Transmission Date: 20120608
  Serious: Yes (Other)
  Sender: FDA-Public Use
  Company Number: DE-VERTEX PHARMACEUTICALS INC.-AE-2011-004629

PATIENT
  Sex: Female
  Weight: 64.7 kg

DRUGS (9)
  1. INCIVO (TELAPREVIR) [Suspect]
     Indication: HEPATITIS C
     Route: 048
     Dates: start: 20111111, end: 20111114
  2. COPEGUS [Concomitant]
     Dates: start: 20120201, end: 20120213
  3. INTERFERON [Concomitant]
     Indication: HEPATITIS C
     Dates: start: 20111111, end: 20111114
  4. DIOVAN HCT [Concomitant]
  5. BISOPROLOL FUMARATE [Concomitant]
  6. COPEGUS [Concomitant]
     Indication: HEPATITIS C
     Dates: start: 20111111, end: 20111114
  7. BROMAZANIL [Concomitant]
     Indication: PRODUCT USED FOR UNKNOWN INDICATION
  8. INCIVO (TELAPREVIR) [Suspect]
     Route: 048
     Dates: start: 20120201, end: 20120213
  9. INTERFERON [Concomitant]
     Dates: start: 20120201, end: 20120213

REACTIONS (8)
  - VOMITING [None]
  - WEIGHT DECREASED [None]
  - CIRCULATORY COLLAPSE [None]
  - SYNCOPE [None]
  - BLOOD PRESSURE DECREASED [None]
  - FOOD AVERSION [None]
  - NAUSEA [None]
  - DRUG PRESCRIBING ERROR [None]
